FAERS Safety Report 9148777 (Version 1)
Quarter: 2013Q1

REPORT INFORMATION
  Report Type: Spontaneous
  Country: AU (occurrence: AU)
  Receive Date: 20130308
  Receipt Date: 20130308
  Transmission Date: 20140127
  Serious: Yes (Other)
  Sender: FDA-Public Use
  Company Number: AU-AMGEN-AUSSP2012066795

PATIENT
  Sex: Female

DRUGS (2)
  1. SENSIPAR [Suspect]
     Indication: PRODUCT USED FOR UNKNOWN INDICATION
     Dosage: 90 MG, BID
  2. RENAGEL                            /01459901/ [Concomitant]
     Dosage: 800 MG, TID

REACTIONS (6)
  - Brown tumour [Unknown]
  - Renal osteodystrophy [Unknown]
  - Azotaemia [Unknown]
  - Treatment noncompliance [Unknown]
  - Nausea [Unknown]
  - Vomiting [Unknown]
